FAERS Safety Report 7031624-3 (Version None)
Quarter: 2010Q4

REPORT INFORMATION
  Report Type: 
  Country: None (occurrence: None)
  Receive Date: 20101006
  Receipt Date: 20101006
  Transmission Date: 20110411
  Serious: No
  Sender: FDA-Public Use
  Company Number: None

PATIENT

DRUGS (2)
  1. NUTROFURANTOIN [Suspect]
     Dosage: NUTROFURANTOIN 100 MG PO EVERY 6 HOURS X 7 DAYS STARTED 9/30/2010
     Route: 048
     Dates: start: 20100930
  2. AMOXICILLIN [Concomitant]

REACTIONS (2)
  - DRUG HYPERSENSITIVITY [None]
  - RASH ERYTHEMATOUS [None]
